FAERS Safety Report 9013501 (Version 1)
Quarter: 2013Q1

REPORT INFORMATION
  Report Type: Spontaneous
  Country: US (occurrence: None)
  Receive Date: 20130107
  Receipt Date: 20130107
  Transmission Date: 20140127
  Serious: Yes (Hospitalization)
  Sender: FDA-Public Use
  Company Number: None

PATIENT
  Age: 77 Year
  Sex: Female
  Weight: 63.5 kg

DRUGS (2)
  1. GEMCITABINE [Suspect]
     Indication: BLADDER CANCER
     Dosage: 2100 MG ONCE IV
     Route: 042
     Dates: start: 20121212
  2. CISPLATIN [Suspect]
     Indication: BLADDER CANCER
     Dosage: 60 MG TWICE IV
     Route: 042
     Dates: start: 20121217

REACTIONS (3)
  - Pyrexia [None]
  - Nausea [None]
  - Vomiting [None]
